FAERS Safety Report 8222290-X (Version None)
Quarter: 2012Q1

REPORT INFORMATION
  Report Type: 
  Country: None (occurrence: None)
  Receive Date: 20120320
  Receipt Date: 20120215
  Transmission Date: 20120608
  Serious: Yes (Death, Hospitalization)
  Sender: FDA-Public Use
  Company Number: BR-VIIV HEALTHCARE LIMITED-B0783197A

PATIENT
  Sex: Male
  Weight: 73 kg

DRUGS (10)
  1. DOLUTEGRAVIR [Suspect]
     Indication: HIV INFECTION
     Dosage: 50MG TWICE PER DAY
     Route: 065
  2. DARUNAVIR HYDRATE [Suspect]
     Indication: HIV INFECTION
     Dates: start: 20100101
  3. TAXOL [Suspect]
     Indication: KAPOSI'S SARCOMA
     Dosage: 90MG WEEKLY
     Route: 042
     Dates: start: 20100901
  4. GANCICLOVIR [Suspect]
     Indication: CYTOMEGALOVIRUS CHORIORETINITIS
     Dosage: 350MG TWICE PER DAY
     Route: 042
     Dates: start: 20120215, end: 20120305
  5. MARAVIROC [Suspect]
     Indication: HIV INFECTION
  6. LAMIVUDINE (EPIVIR HBV) [Suspect]
     Indication: HIV INFECTION
     Dates: start: 20100101
  7. GANCICLOVIR [Suspect]
     Dosage: 350MG PER DAY
     Route: 042
     Dates: start: 20120306, end: 20120306
  8. RITONAVIR [Suspect]
     Indication: HIV INFECTION
     Dates: start: 20100101
  9. ETRAVIRINE [Suspect]
     Indication: HIV INFECTION
     Dates: start: 20100101
  10. ZIDOVUDINE [Suspect]
     Indication: HIV INFECTION
     Dates: start: 20100101

REACTIONS (2)
  - PULMONARY HAEMORRHAGE [None]
  - CYTOMEGALOVIRUS CHORIORETINITIS [None]
